FAERS Safety Report 14998290 (Version 1)
Quarter: 2018Q2

REPORT INFORMATION
  Report Type: Report from Study
  Country: TW (occurrence: TW)
  Receive Date: 20180611
  Receipt Date: 20180611
  Transmission Date: 20180711
  Serious: Yes (Other)
  Sender: FDA-Public Use
  Company Number: PHHY2018TW075087

PATIENT
  Age: 70 Year
  Sex: Male

DRUGS (36)
  1. FELODIPINE. [Concomitant]
     Active Substance: FELODIPINE
     Indication: HYPERTENSION
     Dosage: 10 MG, UNK
     Route: 048
     Dates: start: 20110131
  2. TASIGNA [Suspect]
     Active Substance: NILOTINIB
     Dosage: 300 UNK, UNK
     Route: 048
     Dates: start: 20170303, end: 20170510
  3. BISACODYL. [Concomitant]
     Active Substance: BISACODYL
     Indication: CONSTIPATION
     Dosage: 5 MG, UNK
     Route: 048
     Dates: start: 20160419, end: 20160711
  4. LIDOCAINE. [Concomitant]
     Active Substance: LIDOCAINE
     Dosage: 20 ML, UNK
     Route: 065
     Dates: start: 20170419
  5. TRANEXAMIC ACID. [Concomitant]
     Active Substance: TRANEXAMIC ACID
     Dosage: 1000 MG, UNK
     Route: 042
     Dates: start: 20170419, end: 20170419
  6. POTASSIUM GLUCONATE [Concomitant]
     Active Substance: POTASSIUM GLUCONATE
     Dosage: 595 MG, UNK
     Route: 048
     Dates: start: 20160530, end: 20160605
  7. PYRIDOSTIGMINE [Concomitant]
     Active Substance: PYRIDOSTIGMINE
     Indication: MYASTHENIA GRAVIS
     Dosage: 60 MG, UNK
     Route: 048
     Dates: start: 20110131
  8. SCOPOLAMINE BUTYLBROMIDE [Concomitant]
     Active Substance: SCOPOLAMINE
     Indication: PRODUCT USED FOR UNKNOWN INDICATION
     Dosage: 20 MG, UNK
     Route: 030
     Dates: start: 20170414, end: 20170414
  9. SENNOSIDE [Concomitant]
     Active Substance: SENNOSIDES
     Indication: CONSTIPATION
     Dosage: 2 UNK, UNK
     Route: 048
     Dates: start: 20160419, end: 20160711
  10. TASIGNA [Suspect]
     Active Substance: NILOTINIB
     Dosage: 300 UNK, UNK
     Route: 048
     Dates: start: 20170519
  11. CEFAZOLIN [Concomitant]
     Active Substance: CEFAZOLIN
     Indication: PRODUCT USED FOR UNKNOWN INDICATION
     Dosage: 1 G, UNK
     Route: 065
     Dates: start: 20170413, end: 20170413
  12. LEVOCETIRIZINE [Concomitant]
     Active Substance: LEVOCETIRIZINE
     Indication: RHINORRHOEA
     Dosage: 1 DF, UNK
     Route: 048
     Dates: start: 20170415, end: 20170421
  13. NICARDIPINE [Concomitant]
     Active Substance: NICARDIPINE
     Indication: HYPERTENSION
     Dosage: 1 DF, UNK
     Route: 048
     Dates: start: 20170414, end: 20170414
  14. OXETHAZAINE [Concomitant]
     Active Substance: OXETHAZAINE
     Indication: GASTRIC ULCER
     Dosage: 1 DF, UNK
     Route: 048
     Dates: start: 20170413, end: 20170424
  15. POTASSIUM GLUCONATE [Concomitant]
     Active Substance: POTASSIUM GLUCONATE
     Indication: HYPOKALAEMIA
     Dosage: 595 MG, UNK
     Route: 048
     Dates: start: 20160516, end: 20160521
  16. SEVOFLURANE. [Concomitant]
     Active Substance: SEVOFLURANE
     Indication: PRODUCT USED FOR UNKNOWN INDICATION
     Dosage: 1 ML, UNK
     Route: 065
     Dates: start: 20170413, end: 20170413
  17. EPINEPHRINE. [Concomitant]
     Active Substance: EPINEPHRINE
     Indication: PRODUCT USED FOR UNKNOWN INDICATION
     Dosage: 30 ML, UNK
     Route: 065
     Dates: start: 20170413, end: 20170413
  18. GLYCOPYRROLATE. [Concomitant]
     Active Substance: GLYCOPYRROLATE
     Indication: PRODUCT USED FOR UNKNOWN INDICATION
     Dosage: 0.2 MG, UNK
     Route: 065
     Dates: start: 20170413, end: 20170413
  19. LIDOCAINE. [Concomitant]
     Active Substance: LIDOCAINE
     Indication: PRODUCT USED FOR UNKNOWN INDICATION
     Dosage: 30 G, UNK
     Route: 061
     Dates: start: 20170413
  20. SENNOSIDE [Concomitant]
     Active Substance: SENNOSIDES
     Dosage: 1 UNK, UNK
     Route: 048
     Dates: start: 20170421
  21. TRANEXAMIC ACID. [Concomitant]
     Active Substance: TRANEXAMIC ACID
     Indication: PRODUCT USED FOR UNKNOWN INDICATION
     Dosage: 2000 MG, UNK
     Route: 042
     Dates: start: 20170413, end: 20170413
  22. CEFAZOLIN [Concomitant]
     Active Substance: CEFAZOLIN
     Dosage: 1 G, IVD
     Route: 065
     Dates: start: 20170419, end: 20170424
  23. HYDROCORTISON [Concomitant]
     Active Substance: HYDROCORTISONE
     Indication: PRODUCT USED FOR UNKNOWN INDICATION
     Dosage: 100 MG, UNK
     Route: 065
     Dates: start: 20170413, end: 20170413
  24. PROPOFOL. [Concomitant]
     Active Substance: PROPOFOL
     Indication: PRODUCT USED FOR UNKNOWN INDICATION
     Dosage: 200 MG, UNK
     Route: 065
     Dates: start: 20170413, end: 20170413
  25. TRAMADOL. [Concomitant]
     Active Substance: TRAMADOL
     Indication: PRODUCT USED FOR UNKNOWN INDICATION
     Dosage: 100 MG, UNK
     Route: 030
     Dates: start: 20170419, end: 20170419
  26. CHLORHEXIDINE [Concomitant]
     Active Substance: CHLORHEXIDINE
     Indication: PRODUCT USED FOR UNKNOWN INDICATION
     Dosage: QUANTUM SU, GAR
     Route: 065
     Dates: start: 20170419, end: 20170419
  27. DEXLANSOPRAZOLE [Concomitant]
     Active Substance: DEXLANSOPRAZOLE
     Indication: GASTRIC ULCER
     Dosage: 60 MG, UNK
     Route: 048
     Dates: start: 20160414
  28. DIMETHYLPOLYSILOXANE [Concomitant]
     Indication: PRODUCT USED FOR UNKNOWN INDICATION
     Dosage: 30 ML, UNK
     Route: 048
     Dates: start: 20170414, end: 20170414
  29. LIDOCAINE. [Concomitant]
     Active Substance: LIDOCAINE
     Indication: PRODUCT USED FOR UNKNOWN INDICATION
     Dosage: 20 ML, UNK
     Route: 065
     Dates: start: 20170413
  30. LIDOCAINE. [Concomitant]
     Active Substance: LIDOCAINE
     Dosage: 5 ML, UNK
     Route: 065
  31. LORATADINE. [Concomitant]
     Active Substance: LORATADINE
     Indication: RHINORRHOEA
     Dosage: 10 MG, UNK
     Route: 048
     Dates: start: 20170421
  32. TASIGNA [Suspect]
     Active Substance: NILOTINIB
     Indication: CHRONIC MYELOID LEUKAEMIA
     Dosage: 600 OT, UNK
     Route: 048
     Dates: start: 20160416, end: 20170303
  33. TASIGNA [Suspect]
     Active Substance: NILOTINIB
     Dosage: 300 UNK, UNK
     Route: 048
     Dates: start: 20170511, end: 20170518
  34. DEXAMETHASONE. [Concomitant]
     Active Substance: DEXAMETHASONE
     Indication: PRODUCT USED FOR UNKNOWN INDICATION
     Dosage: QUANTUM SU
     Route: 061
     Dates: start: 20170419, end: 20170419
  35. DIPHENHYDRAMINE. [Concomitant]
     Active Substance: DIPHENHYDRAMINE
     Indication: PRODUCT USED FOR UNKNOWN INDICATION
     Dosage: 1 AMP, IVP
     Route: 065
     Dates: start: 20170415, end: 20170415
  36. MORPHINE [Concomitant]
     Active Substance: MORPHINE
     Indication: PRODUCT USED FOR UNKNOWN INDICATION
     Dosage: 10 MG, UNK
     Route: 065
     Dates: start: 20170413, end: 20170413

REACTIONS (2)
  - Vocal cord disorder [Unknown]
  - Acute respiratory distress syndrome [Unknown]

NARRATIVE: CASE EVENT DATE: 20170427
